FAERS Safety Report 6650951-2 (Version None)
Quarter: 2010Q1

REPORT INFORMATION
  Report Type: 
  Country: None (occurrence: None)
  Receive Date: 20100325
  Receipt Date: 20100311
  Transmission Date: 20100710
  Serious: No
  Sender: FDA-Public Use
  Company Number: US-BIOGENIDEC-2010BI008524

PATIENT
  Age: 55 Year
  Sex: Male

DRUGS (4)
  1. TYSABRI [Suspect]
     Indication: MULTIPLE SCLEROSIS
     Route: 042
     Dates: start: 20070101, end: 20080301
  2. TYSABRI [Suspect]
     Route: 042
     Dates: start: 20090901
  3. METFORMIN HCL [Concomitant]
     Indication: GLUCOSE TOLERANCE IMPAIRED
     Dates: end: 20090901
  4. STEROIDS [Concomitant]
     Indication: MULTIPLE SCLEROSIS RELAPSE

REACTIONS (1)
  - BLOOD GLUCOSE INCREASED [None]
